FAERS Safety Report 20460049 (Version 1)
Quarter: 2022Q1

REPORT INFORMATION
  Report Type: Spontaneous
  Country: DE (occurrence: DE)
  Receive Date: 20220211
  Receipt Date: 20220211
  Transmission Date: 20220423
  Serious: Yes (Other)
  Sender: FDA-Public Use
  Company Number: DE-BRISTOL-MYERS SQUIBB COMPANY-BMS-2022-016047

PATIENT
  Age: 74 Year
  Sex: Female

DRUGS (2)
  1. NIVOLUMAB [Suspect]
     Active Substance: NIVOLUMAB
     Indication: Lung adenocarcinoma
     Dosage: UNAVAILABLE
     Route: 065
  2. IPILIMUMAB [Suspect]
     Active Substance: IPILIMUMAB
     Indication: Lung adenocarcinoma
     Route: 065

REACTIONS (5)
  - Sepsis [Unknown]
  - Vascular device infection [Unknown]
  - Thyroid function test abnormal [Unknown]
  - Hepatic function abnormal [Unknown]
  - Rash [Unknown]
